FAERS Safety Report 7269288-6 (Version None)
Quarter: 2011Q1

REPORT INFORMATION
  Report Type: 
  Country: None (occurrence: None)
  Receive Date: 20110124
  Receipt Date: 20100414
  Transmission Date: 20110831
  Serious: No
  Sender: FDA-Public Use
  Company Number: 2010-00384

PATIENT
  Age: 68 Year
  Sex: Female
  Weight: 104.3273 kg

DRUGS (5)
  1. CELEBREX [Concomitant]
  2. ZICAM COLD REMEDY ORAL MIST [Suspect]
     Dosage: 4 DOSES, 4 DOSES
  3. WELCHOL [Concomitant]
  4. AVALIDE [Concomitant]
  5. LOMOTIL [Concomitant]

REACTIONS (1)
  - AGEUSIA [None]
